FAERS Safety Report 24755821 (Version 2)
Quarter: 2025Q1

REPORT INFORMATION
  Report Type: Spontaneous
  Country: BE (occurrence: BE)
  Receive Date: 20241219
  Receipt Date: 20250110
  Transmission Date: 20250408
  Serious: Yes (Other)
  Sender: VERITY PHARMACEUTICALS INC.
  Company Number: BE-VER-202400001

PATIENT
  Age: 56 Year
  Sex: Male

DRUGS (2)
  1. TRIPTORELIN [Suspect]
     Active Substance: TRIPTORELIN
     Indication: Prostate cancer
     Route: 065
  2. APALUTAMIDE [Suspect]
     Active Substance: APALUTAMIDE
     Indication: Prostate cancer
     Route: 065

REACTIONS (1)
  - Hypothyroidism [Unknown]
